FAERS Safety Report 26062371 (Version 1)
Quarter: 2025Q4

REPORT INFORMATION
  Report Type: Spontaneous
  Country: US (occurrence: US)
  Receive Date: 20251119
  Receipt Date: 20251119
  Transmission Date: 20260117
  Serious: No
  Sender: AZURITY PHARMACEUTICALS
  Company Number: US-AZURITY PHARMACEUTICALS, INC.-AZR202510-003139

PATIENT
  Age: 61 Year
  Sex: Male

DRUGS (1)
  1. DANZITEN [Suspect]
     Active Substance: NILOTINIB
     Indication: Philadelphia positive chronic myeloid leukaemia
     Dosage: 142 MILLIGRAM, BID (TWICE DAILY)
     Route: 065
     Dates: start: 202506

REACTIONS (2)
  - Energy increased [Unknown]
  - Pain [Unknown]

NARRATIVE: CASE EVENT DATE: 20251007
